FAERS Safety Report 10043364 (Version 1)
Quarter: 2014Q1

REPORT INFORMATION
  Report Type: Spontaneous
  Country: US (occurrence: None)
  Receive Date: 20140327
  Receipt Date: 20140327
  Transmission Date: 20141002
  Serious: Yes (Death, Hospitalization)
  Sender: FDA-Public Use
  Company Number: None

PATIENT
  Age: 57 Year
  Sex: Female
  Weight: 65.3 kg

DRUGS (2)
  1. CARBOPLATIN [Suspect]
     Dates: end: 20100706
  2. PACLITAXEL [Suspect]
     Dates: end: 20100706

REACTIONS (3)
  - Pyrexia [None]
  - Fatigue [None]
  - Cardio-respiratory arrest [None]
